FAERS Safety Report 14267576 (Version 1)
Quarter: 2017Q4

REPORT INFORMATION
  Report Type: Spontaneous
  Country: AE (occurrence: AE)
  Receive Date: 20171210
  Receipt Date: 20171210
  Transmission Date: 20180321
  Serious: No
  Sender: FDA-Public Use
  Company Number: None

PATIENT
  Sex: Male
  Weight: 85.5 kg

DRUGS (4)
  1. ASA 81 [Concomitant]
     Active Substance: ASPIRIN
  2. LOSARTANPOTASSIUM [Suspect]
     Active Substance: LOSARTAN POTASSIUM
  3. BRILINTA [Concomitant]
     Active Substance: TICAGRELOR
  4. AREDS2 [Concomitant]

REACTIONS (2)
  - Rash [None]
  - Photosensitivity reaction [None]

NARRATIVE: CASE EVENT DATE: 20171125
